FAERS Safety Report 21679517 (Version 1)
Quarter: 2022Q4

REPORT INFORMATION
  Report Type: Spontaneous
  Country: US (occurrence: US)
  Receive Date: 20221205
  Receipt Date: 20221205
  Transmission Date: 20230112
  Serious: No
  Sender: FDA-Public Use
  Company Number: US-STRIDES ARCOLAB LIMITED-2022SP010823

PATIENT
  Age: 50 Year
  Sex: Male

DRUGS (4)
  1. AMANTADINE [Suspect]
     Active Substance: AMANTADINE
     Indication: Craniocerebral injury
     Dosage: UNK
     Route: 065
  2. DONEPEZIL [Suspect]
     Active Substance: DONEPEZIL
     Indication: Craniocerebral injury
     Dosage: 5 MILLIGRAM, PER DAY
     Route: 065
  3. DONEPEZIL [Suspect]
     Active Substance: DONEPEZIL
     Dosage: 10 MILLIGRAM, PER DAY (ONE WEEK LATER AND MAINTAINED FOR 3 MONTHS)
     Route: 065
  4. DONEPEZIL [Suspect]
     Active Substance: DONEPEZIL
     Dosage: 5 MILLIGRAM, NIGHTLY, PER DAY
     Route: 065

REACTIONS (3)
  - Sedation [Unknown]
  - Abnormal dreams [Recovered/Resolved]
  - Off label use [Unknown]
